FAERS Safety Report 20819851 (Version 1)
Quarter: 2022Q2

REPORT INFORMATION
  Report Type: Spontaneous
  Country: US (occurrence: None)
  Receive Date: 20220512
  Receipt Date: 20220512
  Transmission Date: 20220721
  Serious: Yes (Life-Threatening, Hospitalization)
  Sender: FDA-Public Use
  Company Number: None

PATIENT

DRUGS (1)
  1. RIVAROXABAN [Suspect]
     Active Substance: RIVAROXABAN
     Dosage: FREQUENCY : DAILY;?
     Route: 048
     Dates: start: 20200317, end: 20220427

REACTIONS (5)
  - Gastric haemorrhage [None]
  - Iron deficiency anaemia [None]
  - Carcinoid tumour in the large intestine [None]
  - Heart rate increased [None]
  - Hypokalaemia [None]

NARRATIVE: CASE EVENT DATE: 20220427
